FAERS Safety Report 18884632 (Version 3)
Quarter: 2022Q3

REPORT INFORMATION
  Report Type: Spontaneous
  Country: US (occurrence: US)
  Receive Date: 20210212
  Receipt Date: 20220715
  Transmission Date: 20221026
  Serious: Yes (Other)
  Sender: FDA-Public Use
  Company Number: US-DRREDDYS-USA/USA/21/0131680

PATIENT
  Age: 22 Year
  Sex: Male

DRUGS (7)
  1. SIROLIMUS [Interacting]
     Active Substance: SIROLIMUS
     Indication: Immunosuppression
  2. SIROLIMUS [Interacting]
     Active Substance: SIROLIMUS
  3. ELEXACAFTOR\IVACAFTOR\TEZACAFTOR [Suspect]
     Active Substance: ELEXACAFTOR\IVACAFTOR\TEZACAFTOR
     Indication: Immunosuppression
     Dosage: 200/150/100MG IN THE MORNING
  4. ELEXACAFTOR\IVACAFTOR\TEZACAFTOR [Suspect]
     Active Substance: ELEXACAFTOR\IVACAFTOR\TEZACAFTOR
     Dosage: REDUCED 200/150/100MG DAILY WITH NO EVENING IVACAFTOR DOSE
  5. IVACAFTOR [Suspect]
     Active Substance: IVACAFTOR
     Indication: Immunosuppression
     Dosage: 150MG IN THE EVENING
  6. PREDNISONE [Suspect]
     Active Substance: PREDNISONE
     Indication: Immunosuppression
  7. IVACAFTOR\LUMACAFTOR [Suspect]
     Active Substance: IVACAFTOR\LUMACAFTOR
     Indication: Immunosuppression
     Dates: start: 201911

REACTIONS (3)
  - Lymphoproliferative disorder [Recovered/Resolved]
  - Drug level increased [Unknown]
  - Drug interaction [Unknown]
